FAERS Safety Report 19402540 (Version 2)
Quarter: 2022Q1

REPORT INFORMATION
  Report Type: Spontaneous
  Country: US (occurrence: US)
  Receive Date: 20210611
  Receipt Date: 20220216
  Transmission Date: 20220423
  Serious: No
  Sender: FDA-Public Use
  Company Number: US-SA-SAC20210609001140

PATIENT
  Age: 71 Year
  Sex: Female

DRUGS (2)
  1. DUPIXENT [Suspect]
     Active Substance: DUPILUMAB
     Indication: Dermatitis atopic
     Dosage: 300 MG, QOW
     Route: 058
     Dates: start: 20210428
  2. MOTRIN [Concomitant]
     Active Substance: IBUPROFEN
     Dosage: UNK

REACTIONS (5)
  - Dizziness [Unknown]
  - Malaise [Unknown]
  - Limb discomfort [Unknown]
  - Drug intolerance [Unknown]
  - Anxiety [Unknown]

NARRATIVE: CASE EVENT DATE: 20210426
